FAERS Safety Report 8829226 (Version 1)
Quarter: 2012Q4

REPORT INFORMATION
  Report Type: 
  Country: CA (occurrence: CA)
  Receive Date: 20121008
  Receipt Date: 20121008
  Transmission Date: 20130627
  Serious: Yes (Other)
  Sender: FDA-Public Use
  Company Number: PHHY2008CA044414

PATIENT

DRUGS (1)
  1. SANDOSTATIN LAR [Suspect]
     Dates: start: 20061124

REACTIONS (9)
  - Blood pressure increased [Unknown]
  - Joint range of motion decreased [Unknown]
  - Oral pain [Unknown]
  - Abdominal distension [Unknown]
  - Oedema peripheral [Unknown]
  - Diarrhoea [Unknown]
  - Asthenia [Unknown]
  - Dyspnoea [Unknown]
  - Fatigue [Unknown]
